FAERS Safety Report 21590395 (Version 1)
Quarter: 2022Q4

REPORT INFORMATION
  Report Type: Spontaneous
  Country: JP (occurrence: JP)
  Receive Date: 20221114
  Receipt Date: 20221114
  Transmission Date: 20230113
  Serious: Yes (Other)
  Sender: FDA-Public Use
  Company Number: JP-UCBSA-2022065168

PATIENT
  Age: 60 Year
  Sex: Male

DRUGS (3)
  1. VIMPAT [Suspect]
     Active Substance: LACOSAMIDE
     Indication: Epilepsy
     Dosage: 100 MILLIGRAM, ONCE DAILY (QD)
     Route: 048
  2. FOSPHENYTOIN SODIUM HEPTAHYDRATE [Suspect]
     Active Substance: FOSPHENYTOIN SODIUM HEPTAHYDRATE
     Indication: Epilepsy
     Dosage: 675 MILLIGRAM, ONCE DAILY (QD)
  3. LEVETIRACETAM [Concomitant]
     Active Substance: LEVETIRACETAM
     Indication: Epilepsy
     Dosage: 1000 MILLIGRAM, ONCE DAILY (QD)
     Route: 048

REACTIONS (1)
  - Myoclonus [Recovered/Resolved]
